FAERS Safety Report 24277267 (Version 1)
Quarter: 2024Q3

REPORT INFORMATION
  Report Type: Spontaneous
  Country: IT (occurrence: IT)
  Receive Date: 20240903
  Receipt Date: 20240903
  Transmission Date: 20241017
  Serious: Yes (Other)
  Sender: NOVARTIS
  Company Number: IT-002147023-NVSC2016IT016554

PATIENT

DRUGS (1)
  1. GILENYA [Suspect]
     Active Substance: FINGOLIMOD HYDROCHLORIDE
     Indication: Foetal exposure during pregnancy
     Dosage: (MATERNAL EXPOSURE DURING PREGNANCY + 0.5 MG UNSPECIFIED FREQUENCY (8 CAPSULES/DAY) (ROUTE: TRANSPLA
     Route: 050

REACTIONS (2)
  - Chromosomal deletion [Unknown]
  - Foetal exposure during pregnancy [Unknown]
